FAERS Safety Report 18775710 (Version 1)
Quarter: 2021Q1

REPORT INFORMATION
  Report Type: Spontaneous
  Country: DE (occurrence: DE)
  Receive Date: 20210122
  Receipt Date: 20210122
  Transmission Date: 20210419
  Serious: Yes (Hospitalization)
  Sender: FDA-Public Use
  Company Number: DE-MYLANLABS-2021M1003491

PATIENT
  Age: 80 Year
  Sex: Female

DRUGS (13)
  1. SPIRONOLACTONE. [Suspect]
     Active Substance: SPIRONOLACTONE
     Indication: PRODUCT USED FOR UNKNOWN INDICATION
     Dosage: 50 MILLIGRAM (50 MG, 1?0?0?0)
  2. THIAMIN                            /00056101/ [Concomitant]
     Active Substance: THIAMINE
     Dosage: 100 MILLIGRAM (100 MG, 1?0?0?0)
  3. DULOXETINE. [Suspect]
     Active Substance: DULOXETINE
     Indication: PRODUCT USED FOR UNKNOWN INDICATION
     Dosage: 60 MILLIGRAM (60 MG, 1?0?0?0)
  4. FUROSEMIDE. [Suspect]
     Active Substance: FUROSEMIDE
     Indication: PRODUCT USED FOR UNKNOWN INDICATION
     Dosage: 10 MILLIGRAM (10 MG, 1?1?1?0)
  5. EMPAGLIFLOZIN [Concomitant]
     Active Substance: EMPAGLIFLOZIN
     Dosage: 10 MILLIGRAM (10 MG, 1?0?0?0)
  6. PANTOPRAZOL                        /01263201/ [Concomitant]
     Active Substance: PANTOPRAZOLE
     Dosage: 40 MILLIGRAM (40 MG, 1?0?1?0)
  7. ALLOPURINOL. [Concomitant]
     Active Substance: ALLOPURINOL
     Dosage: 100 MILLIGRAM (100 MG, 1?0?0?0)
  8. SIMVASTATIN. [Concomitant]
     Active Substance: SIMVASTATIN
     Dosage: 20 MILLIGRAM (20 MG, 0?0?1?0)
  9. APIXABAN [Suspect]
     Active Substance: APIXABAN
     Indication: PRODUCT USED FOR UNKNOWN INDICATION
     Dosage: 2.5 MILLIGRAM (2.5 MG, 1?0?1?0)
  10. BISOPROLOL [Concomitant]
     Active Substance: BISOPROLOL
     Dosage: 5 MILLIGRAM (5 MG, 1?0?1?0)
  11. PREGABALIN. [Concomitant]
     Active Substance: PREGABALIN
     Dosage: 25 MILLIGRAM (25 MG, 1?0?1?0)
  12. MIRTAZAPIN [Concomitant]
     Active Substance: MIRTAZAPINE
     Dosage: 30 MILLIGRAM (30 MG, 0?0?1?0)
  13. QUETIAPIN [Concomitant]
     Active Substance: QUETIAPINE
     Dosage: 25 MILLIGRAM (25 MG, 0?0?1?0)

REACTIONS (5)
  - General physical health deterioration [Recovering/Resolving]
  - Pallor [Recovering/Resolving]
  - Anaemia [Recovering/Resolving]
  - Haematochezia [Recovering/Resolving]
  - Diarrhoea [Recovering/Resolving]
